FAERS Safety Report 4279493-9 (Version None)
Quarter: 2004Q1

REPORT INFORMATION
  Report Type: 
  Country: None (occurrence: None)
  Receive Date: 20040126
  Receipt Date: 20040126
  Transmission Date: 20041129
  Serious: Yes (Disabling)
  Sender: FDA-Public Use
  Company Number: None

PATIENT
  Age: 13 Year
  Sex: Female
  Weight: 38.5557 kg

DRUGS (2)
  1. CELEXA [Suspect]
     Indication: TRICHOTILLOMANIA
     Dosage: 20MG 2 TIMES ORAL
     Route: 048
     Dates: start: 20030520, end: 20031002
  2. CELEXA [Suspect]
     Indication: TRICHOTILLOMANIA
     Dosage: DOWN TO 3MG 2 TIMES ORAL
     Route: 048
     Dates: start: 20031002, end: 20040124

REACTIONS (20)
  - ABNORMAL BEHAVIOUR [None]
  - AMNESIA [None]
  - DIFFICULTY IN WALKING [None]
  - DIZZINESS [None]
  - DRUG INEFFECTIVE [None]
  - DRUG WITHDRAWAL SYNDROME [None]
  - FATIGUE [None]
  - HEADACHE [None]
  - MALAISE [None]
  - MEDICATION ERROR [None]
  - MEMORY IMPAIRMENT [None]
  - MUSCLE TIGHTNESS [None]
  - NAUSEA [None]
  - NIGHTMARE [None]
  - PAIN IN EXTREMITY [None]
  - POISONING [None]
  - SOMNOLENCE [None]
  - SYNCOPE [None]
  - TREMOR [None]
  - VISION BLURRED [None]
